FAERS Safety Report 9430336 (Version 1)
Quarter: 2013Q3

REPORT INFORMATION
  Report Type: Report from Study
  Country: US (occurrence: US)
  Receive Date: 20130730
  Receipt Date: 20130730
  Transmission Date: 20140515
  Serious: No
  Sender: FDA-Public Use
  Company Number: US-ABBOTT-13P-163-1082635-00

PATIENT
  Age: 47 Year
  Sex: Female

DRUGS (2)
  1. NIASPAN (COATED) [Suspect]
     Indication: ARTERIAL OCCLUSIVE DISEASE
     Dosage: AT BEDTIME
     Route: 048
     Dates: start: 20130418
  2. NIASPAN (COATED) [Suspect]
     Indication: VASCULAR OCCLUSION

REACTIONS (3)
  - Flushing [Not Recovered/Not Resolved]
  - Erythema [Not Recovered/Not Resolved]
  - Skin burning sensation [Not Recovered/Not Resolved]
